FAERS Safety Report 16612448 (Version 1)
Quarter: 2019Q3

REPORT INFORMATION
  Report Type: Spontaneous
  Country: HU (occurrence: HU)
  Receive Date: 20190722
  Receipt Date: 20190722
  Transmission Date: 20191004
  Serious: Yes (Death, Hospitalization, Other)
  Sender: FDA-Public Use
  Company Number: HU-BAUSCH-BL-2019-020205

PATIENT
  Age: 12 Year
  Sex: Male

DRUGS (15)
  1. IFOSFAMIDE. [Suspect]
     Active Substance: IFOSFAMIDE
     Indication: T-CELL TYPE ACUTE LEUKAEMIA
     Route: 065
  2. PREDNISOLONE. [Suspect]
     Active Substance: PREDNISOLONE
     Indication: T-CELL TYPE ACUTE LEUKAEMIA
     Route: 065
  3. METHOTREXATE. [Suspect]
     Active Substance: METHOTREXATE
     Indication: T-CELL TYPE ACUTE LEUKAEMIA
     Route: 065
  4. ETOPOSIDE. [Suspect]
     Active Substance: ETOPOSIDE
     Indication: T-CELL TYPE ACUTE LEUKAEMIA
     Route: 065
  5. METHOTREXATE. [Suspect]
     Active Substance: METHOTREXATE
     Dosage: DOSE: 2 (UNIT UNSPECIFIED )
     Route: 037
  6. ASPARAGINASE [Suspect]
     Active Substance: ASPARAGINASE
     Indication: T-CELL TYPE ACUTE LEUKAEMIA
     Route: 065
  7. VINDESINE [Suspect]
     Active Substance: VINDESINE
     Indication: T-CELL TYPE ACUTE LEUKAEMIA
     Route: 065
  8. VINCRISTINE [Suspect]
     Active Substance: VINCRISTINE
     Indication: T-CELL TYPE ACUTE LEUKAEMIA
     Route: 065
  9. CYCLOPHOSPHAMIDE. [Suspect]
     Active Substance: CYCLOPHOSPHAMIDE
     Indication: T-CELL TYPE ACUTE LEUKAEMIA
     Route: 065
  10. CYTARABINE. [Suspect]
     Active Substance: CYTARABINE
     Route: 065
  11. DOXORUBICIN [Suspect]
     Active Substance: DOXORUBICIN
     Indication: T-CELL TYPE ACUTE LEUKAEMIA
     Route: 065
  12. DAUNORUBICIN [Suspect]
     Active Substance: DAUNORUBICIN
     Indication: T-CELL TYPE ACUTE LEUKAEMIA
     Route: 065
  13. PREDNISOLONE. [Suspect]
     Active Substance: PREDNISOLONE
     Indication: PRODUCT USED FOR UNKNOWN INDICATION
     Dosage: DOSE: 2 (UNSPECIFIED UNIT)
     Route: 037
  14. IDARUBICIN [Suspect]
     Active Substance: IDARUBICIN
     Indication: T-CELL TYPE ACUTE LEUKAEMIA
     Route: 065
  15. CYTARABINE. [Suspect]
     Active Substance: CYTARABINE
     Indication: T-CELL TYPE ACUTE LEUKAEMIA
     Dosage: DOSE: 2 (UNITS UNSPECIFIED)
     Route: 037

REACTIONS (11)
  - Facial paresis [Unknown]
  - Condition aggravated [Fatal]
  - Visual impairment [Recovered/Resolved]
  - Visual field defect [Recovered/Resolved]
  - Pancytopenia [Unknown]
  - T-cell type acute leukaemia [Fatal]
  - Infection [Unknown]
  - Retinal haemorrhage [Recovered/Resolved]
  - Altered state of consciousness [Unknown]
  - Papilloedema [Recovered/Resolved]
  - Recurrent cancer [Unknown]
